FAERS Safety Report 4333681-1 (Version None)
Quarter: 2004Q2

REPORT INFORMATION
  Report Type: 
  Country: None (occurrence: None)
  Receive Date: 20040402
  Receipt Date: 20040324
  Transmission Date: 20050107
  Serious: Yes (Hospitalization, Other)
  Sender: FDA-Public Use
  Company Number: 2004020177

PATIENT
  Age: 79 Year
  Sex: Female
  Weight: 108.8633 kg

DRUGS (8)
  1. NEURONTIN [Suspect]
     Indication: PAIN IN EXTREMITY
     Dosage: ORAL
     Route: 048
  2. LOSARTAN POTASSIUM [Concomitant]
  3. INSULIN [Concomitant]
  4. AMLODIPINE BESYLATE [Concomitant]
  5. ALL OTHER THERAPEUTIC PRODUCTS [Concomitant]
  6. DIURETICS [Concomitant]
  7. AMITRIPTYLINE HCL [Concomitant]
  8. ACETAMINOPHEN [Concomitant]

REACTIONS (5)
  - ABASIA [None]
  - DYSSTASIA [None]
  - PAIN [None]
  - PAIN IN EXTREMITY [None]
  - PULMONARY OEDEMA [None]
